FAERS Safety Report 8275213 (Version 2)
Quarter: 2013Q4

REPORT INFORMATION
  Report Type: Spontaneous
  Country: US (occurrence: US)
  Receive Date: 20111205
  Receipt Date: 20131217
  Transmission Date: 20140711
  Serious: Yes (Death, Hospitalization)
  Sender: FDA-Public Use
  Company Number: US-GLAXOSMITHKLINE-A0938850A

PATIENT
  Age: 64 Year
  Sex: Female
  Weight: 80.5 kg

DRUGS (2)
  1. AVANDAMET [Suspect]
     Indication: DIABETES MELLITUS
     Route: 048
     Dates: start: 20060817, end: 20071222
  2. AVANDIA [Suspect]
     Indication: DIABETES MELLITUS
     Dosage: 4MG PER DAY
     Route: 048
     Dates: start: 2006, end: 2007

REACTIONS (7)
  - Cardiac failure congestive [Unknown]
  - Death [Fatal]
  - Cardiovascular disorder [Fatal]
  - Atrioventricular block complete [Unknown]
  - Acute respiratory failure [Unknown]
  - Renal failure acute [Unknown]
  - Congestive cardiomyopathy [Unknown]
